FAERS Safety Report 6157203-8 (Version None)
Quarter: 2009Q2

REPORT INFORMATION
  Report Type: 
  Country: None (occurrence: None)
  Receive Date: 20090416
  Receipt Date: 20090410
  Transmission Date: 20091009
  Serious: Yes (Life-Threatening, Hospitalization, Other)
  Sender: FDA-Public Use
  Company Number: US-MERCK-0807USA05509

PATIENT
  Age: 67 Year
  Sex: Female

DRUGS (6)
  1. VYTORIN [Suspect]
     Indication: HYPERLIPIDAEMIA
     Route: 048
     Dates: start: 20060828, end: 20080701
  2. VYTORIN [Suspect]
     Indication: HYPERTENSION
     Route: 048
     Dates: start: 20060828, end: 20080701
  3. LUNESTA [Concomitant]
     Route: 065
     Dates: start: 20060828
  4. NICOTINE [Concomitant]
     Route: 065
  5. BONIVA [Concomitant]
     Route: 065
     Dates: end: 20070216
  6. FOSAMAX PLUS D [Concomitant]
     Route: 048
     Dates: start: 20070201

REACTIONS (6)
  - DEHYDRATION [None]
  - HEPATIC NEOPLASM MALIGNANT [None]
  - HYPOTENSION [None]
  - NAUSEA [None]
  - PALLOR [None]
  - TACHYCARDIA [None]
